FAERS Safety Report 20786096 (Version 2)
Quarter: 2024Q2

REPORT INFORMATION
  Report Type: Spontaneous
  Country: US (occurrence: None)
  Receive Date: 20220504
  Receipt Date: 20240526
  Transmission Date: 20240716
  Serious: No
  Sender: FDA-Public Use
  Company Number: US-ROCHE-2937052

PATIENT
  Age: 39 Year
  Sex: Female

DRUGS (1)
  1. OCREVUS [Suspect]
     Active Substance: OCRELIZUMAB
     Indication: Relapsing-remitting multiple sclerosis
     Route: 042
     Dates: start: 20181128

REACTIONS (8)
  - Confusional state [Not Recovered/Not Resolved]
  - Memory impairment [Unknown]
  - Executive dysfunction [Not Recovered/Not Resolved]
  - Mental disorder [Unknown]
  - Pain of skin [Unknown]
  - Fatigue [Not Recovered/Not Resolved]
  - Gait disturbance [Unknown]
  - Movement disorder [Unknown]
